FAERS Safety Report 5030598-4 (Version None)
Quarter: 2006Q2

REPORT INFORMATION
  Report Type: 
  Country: None (occurrence: None)
  Receive Date: 20060615
  Receipt Date: 20060602
  Transmission Date: 20061013
  Serious: Yes (Other)
  Sender: FDA-Public Use
  Company Number: 2006066943

PATIENT
  Age: 55 Year
  Sex: Male

DRUGS (3)
  1. BEXTRA [Suspect]
     Indication: JOINT INJURY
     Dosage: 1-2 TIMES A DAY
     Dates: start: 20010201
  2. LIPITOR [Concomitant]
  3. LEXAPRO [Concomitant]

REACTIONS (5)
  - BLOOD CHOLESTEROL INCREASED [None]
  - CEREBROVASCULAR ACCIDENT [None]
  - DEPRESSION [None]
  - MYOCARDIAL INFARCTION [None]
  - STRESS [None]
